FAERS Safety Report 7465304-7 (Version None)
Quarter: 2011Q2

REPORT INFORMATION
  Report Type: 
  Country: None (occurrence: None)
  Receive Date: 20110509
  Receipt Date: 20110506
  Transmission Date: 20111010
  Serious: Yes (Other)
  Sender: FDA-Public Use
  Company Number: US-JNJFOC-940111-107010073

PATIENT
  Sex: Female
  Weight: 77.11 kg

DRUGS (5)
  1. RETIN-A [Suspect]
     Route: 061
  2. DOXEPIN HYDROCHLORIDE [Suspect]
     Indication: PRODUCT USED FOR UNKNOWN INDICATION
     Route: 048
  3. RETIN-A [Suspect]
     Indication: ACNE
     Route: 061
  4. RETIN-A [Suspect]
     Route: 061
  5. CYCLOBENZAPRINE HYDROCHLORIDE [Suspect]
     Indication: PRODUCT USED FOR UNKNOWN INDICATION
     Route: 048

REACTIONS (12)
  - INTENTIONAL DRUG MISUSE [None]
  - OVERDOSE [None]
  - TOXIC ENCEPHALOPATHY [None]
  - DEPRESSION [None]
  - AMNESIA [None]
  - EXCORIATION [None]
  - HEPATITIS [None]
  - HEADACHE [None]
  - DYSARTHRIA [None]
  - PRURITUS [None]
  - ANXIETY [None]
  - ATAXIA [None]
